FAERS Safety Report 4928703-0 (Version None)
Quarter: 2006Q1

REPORT INFORMATION
  Report Type: 
  Country: None (occurrence: None)
  Receive Date: 20060301
  Receipt Date: 20060217
  Transmission Date: 20060701
  Serious: Yes (Hospitalization)
  Sender: FDA-Public Use
  Company Number: AU-AMGEN-US169365

PATIENT
  Sex: Male

DRUGS (6)
  1. NEUPOGEN [Suspect]
     Indication: DRUG USE FOR UNKNOWN INDICATION
     Route: 058
     Dates: start: 20051029, end: 20051109
  2. DEXAMETHASONE [Concomitant]
     Route: 065
  3. SULFAMETHOXAZOLE + TRIMETHOPRIM [Concomitant]
     Route: 065
  4. FLUCONAZOLE [Concomitant]
     Route: 065
  5. ESOMEPRAZOLE MAGNESIUM [Concomitant]
     Route: 065
  6. VINCRISTINE SULFATE [Concomitant]
     Route: 042

REACTIONS (3)
  - BACK PAIN [None]
  - BONE PAIN [None]
  - CHEST PAIN [None]
